FAERS Safety Report 9943544 (Version 1)
Quarter: 2014Q1

REPORT INFORMATION
  Report Type: Spontaneous
  Country: US (occurrence: US)
  Receive Date: 20140303
  Receipt Date: 20140303
  Transmission Date: 20141002
  Serious: Yes (Life-Threatening, Other)
  Sender: FDA-Public Use
  Company Number: US-MPIJNJ-2014MPI000598

PATIENT
  Age: 57 Year
  Sex: Male

DRUGS (7)
  1. VELCADE [Suspect]
     Indication: MANTLE CELL LYMPHOMA
     Dosage: UNK
  2. BENDAMUSTINE [Concomitant]
     Indication: MANTLE CELL LYMPHOMA
  3. RITUXIMAB [Concomitant]
     Indication: MANTLE CELL LYMPHOMA
  4. CYCLOPHOSPHAMIDE [Concomitant]
     Indication: MANTLE CELL LYMPHOMA
  5. DOXORUBICIN [Concomitant]
     Indication: MANTLE CELL LYMPHOMA
  6. VINCRISTINE [Concomitant]
     Indication: MANTLE CELL LYMPHOMA
  7. PREDNISONE [Concomitant]
     Indication: MANTLE CELL LYMPHOMA

REACTIONS (7)
  - Abdominal abscess [Unknown]
  - Clostridium bacteraemia [Unknown]
  - Large intestine perforation [Unknown]
  - Peritonitis [Unknown]
  - Small intestinal obstruction [Unknown]
  - Septic shock [Unknown]
  - Mantle cell lymphoma refractory [Unknown]
